FAERS Safety Report 5161670-6 (Version None)
Quarter: 2006Q4

REPORT INFORMATION
  Report Type: 
  Country: None (occurrence: None)
  Receive Date: 20061130
  Receipt Date: 20060425
  Transmission Date: 20070319
  Serious: No
  Sender: FDA-Public Use
  Company Number: US-BRISTOL-MYERS SQUIBB COMPANY-13356282

PATIENT
  Age: 76 Year
  Sex: Female
  Weight: 71 kg

DRUGS (12)
  1. GLUCOPHAGE XR [Suspect]
     Indication: DIABETES MELLITUS NON-INSULIN-DEPENDENT
  2. METFORMIN HCL [Suspect]
     Indication: DIABETES MELLITUS NON-INSULIN-DEPENDENT
  3. GABAPENTIN [Concomitant]
  4. NEXIUM [Concomitant]
  5. ACTOS [Concomitant]
  6. LIPITOR [Concomitant]
  7. ALTACE [Concomitant]
  8. GLYBURIDE [Concomitant]
  9. COREG [Concomitant]
  10. TRIAMTERENE [Concomitant]
  11. IMDUR [Concomitant]
  12. SYNTHROID [Concomitant]

REACTIONS (4)
  - BLOOD GLUCOSE INCREASED [None]
  - DIARRHOEA [None]
  - MEDICATION RESIDUE [None]
  - OVERGROWTH BACTERIAL [None]
